FAERS Safety Report 8250505-0 (Version None)
Quarter: 2012Q2

REPORT INFORMATION
  Report Type: 
  Country: None (occurrence: None)
  Receive Date: 20120402
  Receipt Date: 20120402
  Transmission Date: 20120825
  Serious: Yes (Life-Threatening, Hospitalization, Disabling, Other)
  Sender: FDA-Public Use
  Company Number: None

PATIENT
  Sex: Female
  Weight: 86.182 kg

DRUGS (4)
  1. HYDROCODONE ES [Concomitant]
     Indication: BACK PAIN
     Dosage: ONE TABLET
     Route: 048
     Dates: start: 20030101, end: 20120331
  2. HYDROCODONE ES [Concomitant]
     Indication: NECK PAIN
     Dosage: ONE TABLET
     Route: 048
     Dates: start: 20030101, end: 20120331
  3. HYDROCODONE BITARTRATE [Suspect]
     Indication: BACK PAIN
     Dosage: ONE TABLET
     Route: 048
     Dates: start: 20030101, end: 20120331
  4. HYDROCODONE BITARTRATE [Suspect]
     Indication: NECK PAIN
     Dosage: ONE TABLET
     Route: 048
     Dates: start: 20030101, end: 20120331

REACTIONS (5)
  - TENDON DISORDER [None]
  - SYNOVIAL DISORDER [None]
  - MUSCLE TIGHTNESS [None]
  - JOINT LOCK [None]
  - MUSCLE DISORDER [None]
